FAERS Safety Report 9252475 (Version 2)
Quarter: 2013Q2

REPORT INFORMATION
  Report Type: Report from Study
  Country: JP (occurrence: JP)
  Receive Date: 20130424
  Receipt Date: 20130618
  Transmission Date: 20140414
  Serious: Yes (Death, Hospitalization)
  Sender: FDA-Public Use
  Company Number: JP-JNJFOC-20130406969

PATIENT
  Age: 53 Year
  Sex: Female
  Weight: 60 kg

DRUGS (17)
  1. SIMPONI [Suspect]
     Indication: RHEUMATOID ARTHRITIS
     Route: 058
     Dates: start: 20121211
  2. SIMPONI [Suspect]
     Indication: RHEUMATOID ARTHRITIS
     Route: 058
     Dates: start: 20121113
  3. SIMPONI [Suspect]
     Indication: RHEUMATOID ARTHRITIS
     Route: 058
     Dates: start: 20121016, end: 20130212
  4. PREDNISOLONE [Concomitant]
     Indication: RHEUMATOID ARTHRITIS
     Route: 048
  5. CALONAL [Concomitant]
     Indication: RHEUMATOID ARTHRITIS
     Route: 048
  6. BREDININ [Concomitant]
     Indication: RHEUMATOID ARTHRITIS
     Route: 048
  7. OLMETEC [Concomitant]
     Route: 048
  8. PARIET [Concomitant]
     Route: 048
  9. LIPITOR [Concomitant]
     Route: 048
  10. ZYLORIC [Concomitant]
     Route: 048
  11. LASIX [Concomitant]
  12. ZOLPIDEM [Concomitant]
     Route: 048
  13. PURSENNID [Concomitant]
     Route: 048
  14. DEXCHLORPHENIRAMINE [Concomitant]
  15. GLAKAY [Concomitant]
     Route: 048
  16. MUCOSTA [Concomitant]
     Route: 048
  17. MYONAL [Concomitant]
     Route: 048

REACTIONS (2)
  - Acute myocardial infarction [Fatal]
  - Pyelonephritis acute [Not Recovered/Not Resolved]
